FAERS Safety Report 22588426 (Version 1)
Quarter: 2023Q2

REPORT INFORMATION
  Report Type: Spontaneous
  Country: US (occurrence: US)
  Receive Date: 20230612
  Receipt Date: 20230612
  Transmission Date: 20230722
  Serious: No
  Sender: FDA-Public Use
  Company Number: US-TAKEDA-2023TUS057319

PATIENT
  Sex: Male
  Weight: 66 kg

DRUGS (2)
  1. MYDAYIS [Suspect]
     Active Substance: AMPHETAMINE ASPARTATE\AMPHETAMINE SULFATE\DEXTROAMPHETAMINE SACCHARATE\DEXTROAMPHETAMINE SULFATE
     Indication: Attention deficit hyperactivity disorder
     Dosage: 37.5 MILLIGRAM, QD
     Route: 065
  2. GUANFACINE [Concomitant]
     Active Substance: GUANFACINE

REACTIONS (2)
  - Therapeutic product effect variable [Unknown]
  - Product availability issue [Unknown]
